FAERS Safety Report 25559249 (Version 1)
Quarter: 2025Q3

REPORT INFORMATION
  Report Type: Report from Study
  Country: AE (occurrence: AE)
  Receive Date: 20250715
  Receipt Date: 20250715
  Transmission Date: 20251021
  Serious: Yes (Death, Other)
  Sender: GILEAD
  Company Number: AE-GILEAD-2025-0720614

PATIENT
  Age: 43 Year
  Sex: Female

DRUGS (1)
  1. SACITUZUMAB GOVITECAN-HZIY [Suspect]
     Active Substance: SACITUZUMAB GOVITECAN-HZIY
     Indication: Triple negative breast cancer
     Route: 042
     Dates: start: 20250623, end: 20250704

REACTIONS (2)
  - Sepsis [Fatal]
  - Multi-organ disorder [Fatal]

NARRATIVE: CASE EVENT DATE: 20250713
